FAERS Safety Report 5834643-5 (Version None)
Quarter: 2008Q3

REPORT INFORMATION
  Report Type: 
  Country: None (occurrence: None)
  Receive Date: 20080801
  Receipt Date: 20080721
  Transmission Date: 20090109
  Serious: Yes (Other)
  Sender: FDA-Public Use
  Company Number: 236906J08USA

PATIENT
  Age: 51 Year
  Sex: Female
  Weight: 81.6475 kg

DRUGS (3)
  1. REBIF [Suspect]
     Indication: MULTIPLE SCLEROSIS
     Dosage: 44 MCG, 3 IN 1 WEEKS, SUBCUTANEOUS
     Route: 058
     Dates: start: 20061106
  2. ALEVE (NAPROXEN SOLUTION) [Concomitant]
  3. SINGULAIR [Concomitant]

REACTIONS (3)
  - BLINDNESS UNILATERAL [None]
  - OPTIC NEURITIS [None]
  - PYREXIA [None]
